FAERS Safety Report 6450053-4 (Version None)
Quarter: 2009Q4

REPORT INFORMATION
  Report Type: 
  Country: None (occurrence: None)
  Receive Date: 20091123
  Receipt Date: 20091110
  Transmission Date: 20100525
  Serious: Yes (Hospitalization)
  Sender: FDA-Public Use
  Company Number: KR-ELI_LILLY_AND_COMPANY-KR200911002333

PATIENT
  Age: 50 Year
  Sex: Female

DRUGS (3)
  1. HUMALOG MIX 75/25 [Suspect]
     Indication: DIABETES MELLITUS
     Dosage: 48 U, DAILY (1/D) (28 UNITS EACH MORNINGA ND 20 UNITS EACG EVENING)
     Route: 058
     Dates: start: 20090904
  2. ANTIHYPERTENSIVES [Concomitant]
     Indication: HYPERTENSION
  3. TAMIFLU [Concomitant]

REACTIONS (1)
  - INFLUENZA [None]
